FAERS Safety Report 25884195 (Version 1)
Quarter: 2025Q4

REPORT INFORMATION
  Report Type: Report from Study
  Country: CA (occurrence: CA)
  Receive Date: 20251006
  Receipt Date: 20251006
  Transmission Date: 20260117
  Serious: Yes (Other)
  Sender: ROCHE
  Company Number: CA-ROCHE-10000400777

PATIENT
  Sex: Female
  Weight: 78 kg

DRUGS (13)
  1. RITUXAN [Suspect]
     Active Substance: RITUXIMAB
     Indication: Rheumatoid arthritis
     Dosage: DRUG DOSE FIRST ADMINISTERED IS 1000 MG MILLIGRAM(S)?MOREDOSAGEINFO IS DAY 1, DAY 15
     Route: 042
     Dates: start: 20200127, end: 20221214
  2. RITUXAN [Suspect]
     Active Substance: RITUXIMAB
     Dosage: MOREDOSAGEINFO IS SINGLE INFUSIONS
     Route: 042
     Dates: start: 20230727
  3. ACETAMINOPHEN [Concomitant]
     Active Substance: ACETAMINOPHEN
     Indication: Premedication
     Dosage: DRUG DOSE FIRST ADMINISTERED IS 1 G GRAM(S)
     Route: 048
     Dates: start: 20200127, end: 20200803
  4. ACETAMINOPHEN [Concomitant]
     Active Substance: ACETAMINOPHEN
     Dosage: DRUG DOSE FIRST ADMINISTERED IS 650 MG MILLIGRAM(S)
     Route: 048
     Dates: start: 20210225
  5. CYTOMEL [Concomitant]
     Active Substance: LIOTHYRONINE SODIUM
  6. DIPHENHYDRAMINE HYDROCHLORIDE [Concomitant]
     Active Substance: DIPHENHYDRAMINE HYDROCHLORIDE
     Indication: Premedication
     Dosage: DRUG DOSE FIRST ADMINISTERED IS 50 MG MILLIGRAM(S)
     Route: 048
     Dates: start: 20200127
  7. FOLIC ACID [Concomitant]
     Active Substance: FOLIC ACID
  8. METHOTREXATE [Concomitant]
     Active Substance: METHOTREXATE
  9. METHYLPREDNISOLONE [Concomitant]
     Active Substance: METHYLPREDNISOLONE
     Indication: Premedication
  10. NAPROXEN [Concomitant]
     Active Substance: NAPROXEN
  11. PANTOPRAZOLE SODIUM [Concomitant]
     Active Substance: PANTOPRAZOLE SODIUM
  12. PREDNISONE [Concomitant]
     Active Substance: PREDNISONE
  13. SYNTHROID [Concomitant]
     Active Substance: LEVOTHYROXINE SODIUM

REACTIONS (4)
  - Weight increased [Unknown]
  - COVID-19 [Recovered/Resolved]
  - Infusion related reaction [Unknown]
  - Product prescribing error [Unknown]
